FAERS Safety Report 7001718-7 (Version None)
Quarter: 2010Q3

REPORT INFORMATION
  Report Type: 
  Country: None (occurrence: None)
  Receive Date: 20100920
  Receipt Date: 20100913
  Transmission Date: 20110219
  Serious: Yes (Other)
  Sender: FDA-Public Use
  Company Number: DE-B.I. PHARMACEUTICALS,INC./RIDGEFIELD-2009-DE-04845GD

PATIENT
  Age: 42 Year
  Sex: Male

DRUGS (6)
  1. CLONIDINE [Suspect]
     Indication: PAIN
     Dosage: 0.3 MG
     Route: 037
  2. CLONIDINE [Suspect]
  3. MORPHINE [Suspect]
     Indication: PAIN
     Dosage: 9.5 MG
     Route: 037
  4. MORPHINE [Suspect]
     Dosage: 8 MG
     Route: 037
  5. ORAMORPH SR [Suspect]
     Indication: PAIN
     Dosage: 60-80 MG
     Route: 048
  6. ORAMORPH SR [Suspect]

REACTIONS (6)
  - AGITATION [None]
  - DIARRHOEA [None]
  - DRUG WITHDRAWAL SYNDROME [None]
  - HYPERAESTHESIA [None]
  - PAIN [None]
  - POLLAKIURIA [None]
